FAERS Safety Report 13360062 (Version 1)
Quarter: 2017Q1

REPORT INFORMATION
  Report Type: Spontaneous
  Country: FR (occurrence: FR)
  Receive Date: 20170322
  Receipt Date: 20170322
  Transmission Date: 20170429
  Serious: Yes (Hospitalization)
  Sender: FDA-Public Use
  Company Number: FR-JNJFOC-20170319275

PATIENT
  Age: 53 Year
  Sex: Female

DRUGS (8)
  1. REMICADE [Suspect]
     Active Substance: INFLIXIMAB
     Indication: PSORIATIC ARTHROPATHY
     Route: 042
     Dates: start: 201206
  2. REMICADE [Suspect]
     Active Substance: INFLIXIMAB
     Indication: PSORIATIC ARTHROPATHY
     Route: 042
     Dates: start: 20161130, end: 20161130
  3. OMEPRAZOLE. [Concomitant]
     Active Substance: OMEPRAZOLE
     Route: 065
  4. CALCIUM VITAMIN D3 [Concomitant]
     Route: 065
  5. KARDEGIC [Concomitant]
     Active Substance: ASPIRIN LYSINE
     Route: 065
  6. SKENAN [Concomitant]
     Active Substance: MORPHINE SULFATE
     Route: 065
  7. FUMAFER [Concomitant]
     Active Substance: FERROUS FUMARATE
     Route: 065
  8. ORAMORPH [Concomitant]
     Active Substance: MORPHINE SULFATE
     Route: 065

REACTIONS (4)
  - Pneumonia pneumococcal [Recovered/Resolved]
  - Stress cardiomyopathy [Unknown]
  - Influenza [Unknown]
  - Septic shock [Recovered/Resolved]

NARRATIVE: CASE EVENT DATE: 20170106
